FAERS Safety Report 17569094 (Version 1)
Quarter: 2020Q1

REPORT INFORMATION
  Report Type: Spontaneous
  Country: US (occurrence: US)
  Receive Date: 20200322
  Receipt Date: 20200322
  Transmission Date: 20200409
  Serious: No
  Sender: FDA-Public Use
  Company Number: US-TEVA-2020-US-1206573

PATIENT
  Sex: Female

DRUGS (1)
  1. BUPRENORPHINE. [Suspect]
     Active Substance: BUPRENORPHINE
     Dosage: 15 MCG / HR
     Route: 062

REACTIONS (6)
  - Application site vesicles [Recovered/Resolved]
  - Application site pruritus [Unknown]
  - Product substitution issue [Unknown]
  - Application site irritation [Unknown]
  - Product adhesion issue [Unknown]
  - Therapeutic product effect incomplete [Unknown]
